FAERS Safety Report 11276393 (Version 1)
Quarter: 2015Q3

REPORT INFORMATION
  Report Type: Spontaneous
  Country: US (occurrence: None)
  Receive Date: 20150715
  Receipt Date: 20150715
  Transmission Date: 20151125
  Serious: Yes (Other)
  Sender: FDA-Public Use
  Company Number: None

PATIENT
  Age: 39 Year
  Sex: Female
  Weight: 95.26 kg

DRUGS (10)
  1. MELOXICAM. [Concomitant]
     Active Substance: MELOXICAM
  2. PROTONIX [Concomitant]
     Active Substance: PANTOPRAZOLE SODIUM
  3. LEVOTHYROXINE. [Concomitant]
     Active Substance: LEVOTHYROXINE
  4. TOPAMAX [Concomitant]
     Active Substance: TOPIRAMATE
  5. ZOLOFT [Concomitant]
     Active Substance: SERTRALINE HYDROCHLORIDE
  6. LIPITOR [Concomitant]
     Active Substance: ATORVASTATIN CALCIUM
  7. ACTEMRA [Concomitant]
     Active Substance: TOCILIZUMAB
  8. VITAMIN D3 [Concomitant]
     Active Substance: CHOLECALCIFEROL
  9. ZYRTEC-D [Concomitant]
     Active Substance: CETIRIZINE HYDROCHLORIDE\PSEUDOEPHEDRINE HYDROCHLORIDE
  10. ACTEMRA [Suspect]
     Active Substance: TOCILIZUMAB
     Indication: RHEUMATOID ARTHRITIS
     Dosage: INFUSION, ONCE A MONTH, INTO A VEIN
     Dates: start: 20141119, end: 20150617

REACTIONS (4)
  - Faecal incontinence [None]
  - Urinary incontinence [None]
  - Urticaria [None]
  - Abscess [None]

NARRATIVE: CASE EVENT DATE: 20150618
